FAERS Safety Report 8236146-X (Version None)
Quarter: 2012Q1

REPORT INFORMATION
  Report Type: 
  Country: None (occurrence: None)
  Receive Date: 20120327
  Receipt Date: 20120315
  Transmission Date: 20120608
  Serious: No
  Sender: FDA-Public Use
  Company Number: US-BIOGENIDEC-2012BI009300

PATIENT
  Age: 58 Year
  Sex: Male

DRUGS (2)
  1. TYSABRI [Suspect]
     Indication: MULTIPLE SCLEROSIS
     Route: 042
     Dates: start: 20061221, end: 20090505
  2. TYSABRI [Suspect]
     Route: 042
     Dates: start: 20061221

REACTIONS (4)
  - MUSCLE TIGHTNESS [None]
  - BACK PAIN [None]
  - FATIGUE [None]
  - ASTHENIA [None]
